FAERS Safety Report 5632175-0 (Version None)
Quarter: 2008Q1

REPORT INFORMATION
  Report Type: 
  Country: None (occurrence: None)
  Receive Date: 20080220
  Receipt Date: 20080214
  Transmission Date: 20080703
  Serious: Yes (Other)
  Sender: FDA-Public Use
  Company Number: DK-AVENTIS-200719312GDDC

PATIENT
  Age: 7 Year
  Sex: Male

DRUGS (1)
  1. MINIRIN [Suspect]
     Indication: ENURESIS
     Route: 048
     Dates: start: 20070912, end: 20070925

REACTIONS (2)
  - CONFUSIONAL STATE [None]
  - DELIRIUM [None]
